FAERS Safety Report 9014524 (Version 2)
Quarter: 2013Q4

REPORT INFORMATION
  Report Type: Spontaneous
  Country: GB (occurrence: GB)
  Receive Date: 20130115
  Receipt Date: 20131224
  Transmission Date: 20140711
  Serious: Yes (Death, Other)
  Sender: FDA-Public Use
  Company Number: GB-JNJFOC-20130106091

PATIENT
  Age: 4 Decade
  Sex: Female

DRUGS (2)
  1. REMICADE [Suspect]
     Indication: CROHN^S DISEASE
     Dosage: TOTAL DOSE: 350 MG
     Route: 042
     Dates: start: 201111, end: 201203
  2. AZATHIOPRINE [Concomitant]
     Route: 065

REACTIONS (1)
  - Ovarian cancer metastatic [Fatal]
